FAERS Safety Report 15148669 (Version 1)
Quarter: 2018Q3

REPORT INFORMATION
  Report Type: Report from Study
  Country: US (occurrence: US)
  Receive Date: 20180716
  Receipt Date: 20180716
  Transmission Date: 20181010
  Serious: Yes (Hospitalization)
  Sender: FDA-Public Use
  Company Number: US-BAYER-2018-128642

PATIENT
  Age: 62 Year
  Sex: Male

DRUGS (2)
  1. NEXAVAR [Suspect]
     Active Substance: SORAFENIB
     Indication: HEPATOCELLULAR CARCINOMA
     Dosage: 200 MG, BID (ON AN EMPTY STOMACH 1 HOUR BEFORE OR 2 HOURS AFTER MEAL)
     Route: 048
     Dates: start: 20180608, end: 20180621
  2. NEXAVAR [Suspect]
     Active Substance: SORAFENIB
     Indication: METASTASES TO BONE

REACTIONS (2)
  - Hospitalisation [None]
  - Off label use [None]

NARRATIVE: CASE EVENT DATE: 20180621
